FAERS Safety Report 19870435 (Version 2)
Quarter: 2021Q4

REPORT INFORMATION
  Report Type: Spontaneous
  Country: US (occurrence: US)
  Receive Date: 20210922
  Receipt Date: 20211026
  Transmission Date: 20220303
  Serious: Yes (Other)
  Sender: FDA-Public Use
  Company Number: NVSC2021US212725

PATIENT
  Sex: Female

DRUGS (3)
  1. ALPELISIB [Suspect]
     Active Substance: ALPELISIB
     Indication: Breast cancer metastatic
     Dosage: UNK
     Route: 048
     Dates: start: 202104
  2. ALPELISIB [Suspect]
     Active Substance: ALPELISIB
     Dosage: 300 MG, QD
     Route: 048
     Dates: start: 20210916
  3. ALPELISIB [Suspect]
     Active Substance: ALPELISIB
     Dosage: 250 MG
     Route: 048

REACTIONS (3)
  - Ascites [Not Recovered/Not Resolved]
  - Pulmonary oedema [Not Recovered/Not Resolved]
  - Oedema peripheral [Not Recovered/Not Resolved]

NARRATIVE: CASE EVENT DATE: 20210901
